FAERS Safety Report 9347015 (Version 5)
Quarter: 2015Q4

REPORT INFORMATION
  Report Type: Spontaneous
  Country: CA (occurrence: CA)
  Receive Date: 20130613
  Receipt Date: 20151223
  Transmission Date: 20160305
  Serious: Yes (Hospitalization, Other)
  Sender: FDA-Public Use
  Company Number: CA-GLAXOSMITHKLINE-A0954521A

PATIENT
  Age: 86 Year
  Sex: Female
  Weight: 83.6 kg

DRUGS (5)
  1. ADVAIR HFA [Suspect]
     Active Substance: FLUTICASONE PROPIONATE\SALMETEROL XINAFOATE
     Indication: ASTHMA
     Dosage: 1 PUFF(S), BID, ADVAIR DISKUS 100 MCG/50
     Route: 055
     Dates: start: 2004
  2. ASA [Concomitant]
     Active Substance: ASPIRIN
     Indication: PRODUCT USED FOR UNKNOWN INDICATION
     Dosage: 80 MG, U
     Route: 065
  3. CRESTOR [Concomitant]
     Active Substance: ROSUVASTATIN CALCIUM
     Indication: PRODUCT USED FOR UNKNOWN INDICATION
     Dosage: UNK
  4. ADVAIR HFA [Suspect]
     Active Substance: FLUTICASONE PROPIONATE\SALMETEROL XINAFOATE
     Indication: CHRONIC OBSTRUCTIVE PULMONARY DISEASE
     Dosage: 1 PUFF(S), BID, ADVAIR DISKUS 250
     Route: 055
     Dates: start: 2004
  5. RAMIPRIL. [Concomitant]
     Active Substance: RAMIPRIL
     Indication: PRODUCT USED FOR UNKNOWN INDICATION
     Dosage: UNK

REACTIONS (21)
  - Dyspnoea [Unknown]
  - Cough [Recovered/Resolved]
  - Abnormal dreams [Recovered/Resolved]
  - Respiratory tract infection [Unknown]
  - Dyspnoea [Recovered/Resolved]
  - Bronchial hyperreactivity [Unknown]
  - Cardiac failure [Unknown]
  - Asthma [Recovered/Resolved]
  - Adverse event [Recovered/Resolved]
  - Fall [Unknown]
  - Treatment noncompliance [Not Recovered/Not Resolved]
  - Dysphonia [Not Recovered/Not Resolved]
  - Lung disorder [Recovered/Resolved]
  - Dyspnoea [Recovered/Resolved]
  - Pneumonia [Unknown]
  - Sneezing [Recovered/Resolved]
  - Throat tightness [Recovered/Resolved]
  - Rhinorrhoea [Recovered/Resolved]
  - Bronchitis [Not Recovered/Not Resolved]
  - Balance disorder [Unknown]
  - Contusion [Unknown]

NARRATIVE: CASE EVENT DATE: 2004
